FAERS Safety Report 6707937-9 (Version None)
Quarter: 2010Q2

REPORT INFORMATION
  Report Type: 
  Country: None (occurrence: None)
  Receive Date: 20100429
  Receipt Date: 20100423
  Transmission Date: 20101027
  Serious: Yes (Death)
  Sender: FDA-Public Use
  Company Number: 2010JP001133

PATIENT
  Age: 14 Year
  Sex: Female
  Weight: 39 kg

DRUGS (13)
  1. PROGRAF [Suspect]
     Indication: BONE MARROW TRANSPLANT
     Dosage: 1 MG, UID/QD, IV NOS
     Route: 042
     Dates: start: 20070301, end: 20070330
  2. CYTARABINE [Concomitant]
  3. CYCLOPHOSPHAMIDE [Concomitant]
  4. METHOTREXATE [Concomitant]
  5. NEUPOGEN [Concomitant]
  6. MESNA [Concomitant]
  7. IMMUNE GLOBULIN INTRAVENOUS (HUMAN) [Concomitant]
  8. AZASETRON HYDROCHLORIDE 9AZASETRON HYDROCHLORIDE) [Concomitant]
  9. KYTRIL [Concomitant]
  10. FUNGIZONE [Concomitant]
  11. PRODIF (FOSFLUCONAZOLE) [Concomitant]
  12. FLUMARIN (MORNIFLUMATE) [Concomitant]
  13. ZOVIRAX [Concomitant]

REACTIONS (10)
  - ACUTE RESPIRATORY FAILURE [None]
  - CARDIAC ARREST [None]
  - CARDIO-RESPIRATORY ARREST [None]
  - CONDITION AGGRAVATED [None]
  - GRAFT VERSUS HOST DISEASE [None]
  - HAEMATEMESIS [None]
  - HAEMOPTYSIS [None]
  - IMMUNODEFICIENCY [None]
  - PULMONARY HAEMORRHAGE [None]
  - PULMONARY MYCOSIS [None]
